FAERS Safety Report 8424001-1 (Version None)
Quarter: 2012Q2

REPORT INFORMATION
  Report Type: 
  Country: None (occurrence: None)
  Receive Date: 20120608
  Receipt Date: 20120530
  Transmission Date: 20120825
  Serious: Yes (Other)
  Sender: FDA-Public Use
  Company Number: PHHY2012GB046612

PATIENT
  Age: 42 Year
  Sex: Female

DRUGS (6)
  1. AZATHIOPRINE [Concomitant]
     Dosage: 50 MG, DAILY
  2. MYCOPHENOLATE MOFETIL [Concomitant]
  3. STEROIDS NOS [Concomitant]
     Dosage: 10 MG, UNK
  4. CYCLOSPORINE [Suspect]
     Indication: SARCOIDOSIS
  5. STEROIDS NOS [Concomitant]
     Dosage: 40 MG, UNK
  6. PREDNISOLONE [Concomitant]

REACTIONS (5)
  - MENINGEAL DISORDER [None]
  - CENTRAL OBESITY [None]
  - HEADACHE [None]
  - CATARACT [None]
  - SARCOIDOSIS [None]
